FAERS Safety Report 15680229 (Version 1)
Quarter: 2018Q4

REPORT INFORMATION
  Report Type: Spontaneous
  Country: US (occurrence: US)
  Receive Date: 20181203
  Receipt Date: 20181203
  Transmission Date: 20190205
  Serious: No
  Sender: FDA-Public Use
  Company Number: US-ASTRAZENECA-2018SF50081

PATIENT
  Age: 815 Month
  Sex: Female
  Weight: 68.9 kg

DRUGS (4)
  1. COQ10 [Concomitant]
     Active Substance: UBIDECARENONE
     Indication: CARDIAC DISORDER
     Dosage: DAILY
     Route: 048
  2. LYNPARZA [Suspect]
     Active Substance: OLAPARIB
     Indication: OVARIAN CANCER RECURRENT
     Route: 048
     Dates: start: 201802
  3. VITAMIN D [Concomitant]
     Active Substance: CHOLECALCIFEROL
     Indication: VITAMIN D ABNORMAL
     Dosage: 3000 IU EVERY THREE DAYS
     Route: 048
  4. DIGESTIVE ENZYME SAFE AND SOUND MIGHT BE BY INTEGRATIVE NATUROPATHI... [Concomitant]
     Indication: DYSPEPSIA
     Dosage: AS REQUIRED
     Route: 048

REACTIONS (13)
  - Back pain [Unknown]
  - Peripheral coldness [Not Recovered/Not Resolved]
  - Rhinorrhoea [Not Recovered/Not Resolved]
  - Platelet count abnormal [Not Recovered/Not Resolved]
  - Dysgeusia [Not Recovered/Not Resolved]
  - Haematocrit decreased [Unknown]
  - Rhinitis [Not Recovered/Not Resolved]
  - Contusion [Recovered/Resolved]
  - Seasonal affective disorder [Unknown]
  - Nasal congestion [Unknown]
  - Fatigue [Recovering/Resolving]
  - Haemoglobin decreased [Unknown]
  - Headache [Unknown]

NARRATIVE: CASE EVENT DATE: 201803
